FAERS Safety Report 24236571 (Version 1)
Quarter: 2024Q3

REPORT INFORMATION
  Report Type: Spontaneous
  Country: US (occurrence: US)
  Receive Date: 20240822
  Receipt Date: 20240822
  Transmission Date: 20241017
  Serious: No
  Sender: ELI LILLY AND CO
  Company Number: US-ELI_LILLY_AND_COMPANY-US202408012917

PATIENT
  Age: 63 Year
  Sex: Female

DRUGS (1)
  1. VERZENIO [Suspect]
     Active Substance: ABEMACICLIB
     Indication: Breast cancer female
     Dosage: 150 MG, DAILY
     Route: 048

REACTIONS (7)
  - Anal fissure [Unknown]
  - Skin irritation [Unknown]
  - Hyperaesthesia [Unknown]
  - Abdominal discomfort [Unknown]
  - Hair texture abnormal [Unknown]
  - Product dose omission issue [Unknown]
  - Diarrhoea [Unknown]
